FAERS Safety Report 5676314-4 (Version None)
Quarter: 2008Q1

REPORT INFORMATION
  Report Type: 
  Country: None (occurrence: None)
  Receive Date: 20080321
  Receipt Date: 20080310
  Transmission Date: 20080703
  Serious: Yes (Hospitalization, Other)
  Sender: FDA-Public Use
  Company Number: US-PFIZER INC-2008014838

PATIENT
  Sex: Female
  Weight: 39.9 kg

DRUGS (5)
  1. VARENICLINE [Suspect]
     Indication: NICOTINE DEPENDENCE
     Dosage: DAILY DOSE:.5MG
     Route: 048
     Dates: start: 20080212, end: 20080215
  2. SPIRIVA [Concomitant]
     Route: 055
  3. METHYLPREDNISOLONE [Concomitant]
     Route: 042
  4. ROBITUSSIN-DM [Concomitant]
     Route: 048
  5. ALBUTEROL [Concomitant]
     Route: 055
     Dates: start: 20080210, end: 20080215

REACTIONS (1)
  - SUPRAVENTRICULAR TACHYCARDIA [None]
